FAERS Safety Report 7116681-8 (Version None)
Quarter: 2010Q4

REPORT INFORMATION
  Report Type: 
  Country: None (occurrence: None)
  Receive Date: 20101122
  Receipt Date: 20101115
  Transmission Date: 20110411
  Serious: Yes (Hospitalization)
  Sender: FDA-Public Use
  Company Number: B0684601A

PATIENT
  Sex: Female

DRUGS (1)
  1. MALARONE [Suspect]
     Indication: MALARIA PROPHYLAXIS
     Dosage: 1TAB PER DAY
     Route: 048
     Dates: start: 20101019, end: 20101108

REACTIONS (14)
  - ABDOMINAL DISCOMFORT [None]
  - DECREASED APPETITE [None]
  - DIARRHOEA [None]
  - DIZZINESS [None]
  - FAECES DISCOLOURED [None]
  - HEART RATE INCREASED [None]
  - HYPERSENSITIVITY [None]
  - HYPOTENSION [None]
  - MOUTH ULCERATION [None]
  - OEDEMA PERIPHERAL [None]
  - RASH [None]
  - SWELLING FACE [None]
  - URTICARIA [None]
  - VOMITING [None]
